FAERS Safety Report 24334733 (Version 1)
Quarter: 2024Q3

REPORT INFORMATION
  Report Type: Spontaneous
  Country: TZ (occurrence: TZ)
  Receive Date: 20240918
  Receipt Date: 20240918
  Transmission Date: 20241016
  Serious: Yes (Hospitalization, Other)
  Sender: MYLAN
  Company Number: TZ-MYLANLABS-2024M1081182

PATIENT
  Age: 32 Year
  Sex: Male
  Weight: 65 kg

DRUGS (14)
  1. DELAMANID [Suspect]
     Active Substance: DELAMANID
     Indication: Tuberculosis
     Dosage: 100 MILLIGRAM, BID (TWICE PER DAY)
     Route: 065
     Dates: start: 202209
  2. CYCLOSERINE [Suspect]
     Active Substance: CYCLOSERINE
     Indication: Tuberculosis
     Dosage: 750 MILLIGRAM, QD
     Route: 065
     Dates: start: 201910
  3. PROTIONAMIDE [Suspect]
     Active Substance: PROTIONAMIDE
     Indication: Tuberculosis
     Dosage: UNK
     Route: 065
  4. LINEZOLID [Suspect]
     Active Substance: LINEZOLID
     Indication: Tuberculosis
     Dosage: 1200 MILLIGRAM
     Route: 065
     Dates: start: 202304
  5. LINEZOLID [Suspect]
     Active Substance: LINEZOLID
     Dosage: 600 MILLIGRAM (FOR 2MONTHS)
     Route: 065
     Dates: start: 2023
  6. PARA-AMINOSALICYLIC ACID [Concomitant]
     Active Substance: AMINOSALICYLIC ACID
     Dosage: UNK
     Route: 065
     Dates: start: 202304
  7. LINEZOLID [Concomitant]
     Active Substance: LINEZOLID
     Dosage: 1200 MILLIGRAM
     Route: 065
     Dates: start: 202304
  8. LINEZOLID [Concomitant]
     Active Substance: LINEZOLID
     Dosage: 600 MILLIGRAM
     Route: 065
  9. AMIKACIN [Concomitant]
     Active Substance: AMIKACIN
     Indication: Tuberculosis
     Dosage: UNK UNK, QD
     Route: 065
     Dates: start: 202304
  10. AMIKACIN [Concomitant]
     Active Substance: AMIKACIN
     Dosage: UNK, 3XW
     Route: 065
  11. CYCLOSERINE [Concomitant]
     Active Substance: CYCLOSERINE
     Dosage: UNK
     Route: 065
     Dates: start: 202304
  12. BEDAQUILINE [Concomitant]
     Active Substance: BEDAQUILINE
     Indication: Tuberculosis
     Dosage: UNK
     Route: 065
  13. PYRAZINAMIDE [Concomitant]
     Active Substance: PYRAZINAMIDE
     Dosage: UNK
     Route: 065
  14. ETHIONAMIDE [Concomitant]
     Active Substance: ETHIONAMIDE
     Dosage: UNK
     Route: 065

REACTIONS (4)
  - Deafness [Unknown]
  - Neuropathy peripheral [Unknown]
  - Treatment noncompliance [Unknown]
  - Incorrect product administration duration [Unknown]
